FAERS Safety Report 12275478 (Version 2)
Quarter: 2016Q2

REPORT INFORMATION
  Report Type: Spontaneous
  Country: US (occurrence: US)
  Receive Date: 20160415
  Receipt Date: 20160426
  Transmission Date: 20160815
  Serious: No
  Sender: FDA-Public Use
  Company Number: US-UCBSA-2015022350

PATIENT
  Age: 77 Year
  Sex: Female
  Weight: 68.3 kg

DRUGS (2)
  1. NEUPRO [Suspect]
     Active Substance: ROTIGOTINE
     Indication: OFF LABEL USE
  2. NEUPRO [Suspect]
     Active Substance: ROTIGOTINE
     Indication: MYOCLONUS
     Dosage: 4 MG, ONCE DAILY (QD)
     Route: 062

REACTIONS (6)
  - Joint dislocation [Recovering/Resolving]
  - Fall [Recovered/Resolved]
  - Off label use [Unknown]
  - Product adhesion issue [Unknown]
  - Skin discolouration [Not Recovered/Not Resolved]
  - Drug ineffective for unapproved indication [Unknown]

NARRATIVE: CASE EVENT DATE: 20150530
